FAERS Safety Report 7308329-4 (Version None)
Quarter: 2011Q1

REPORT INFORMATION
  Report Type: 
  Country: None (occurrence: None)
  Receive Date: 20110223
  Receipt Date: 20101108
  Transmission Date: 20110831
  Serious: Yes (Hospitalization)
  Sender: FDA-Public Use
  Company Number: B0684673A

PATIENT
  Sex: Female

DRUGS (10)
  1. CRESTOR [Concomitant]
     Dosage: 1UNIT PER DAY
     Route: 065
  2. PANTORC [Concomitant]
     Dosage: 1UNIT PER DAY
     Route: 065
  3. SERETIDE [Concomitant]
     Dosage: 2UNIT PER DAY
     Route: 065
  4. LASIX [Concomitant]
     Dosage: 125MG PER DAY
     Route: 065
  5. MONOKET [Concomitant]
     Dosage: 2UNIT PER DAY
     Route: 065
  6. CORDARONE [Concomitant]
     Dosage: 1UNIT PER DAY
     Route: 065
  7. SPIRIVA [Concomitant]
     Dosage: 1UNIT PER DAY
     Route: 065
  8. LANOXIN [Suspect]
     Indication: ARRHYTHMIA
     Dosage: 1TAB PER DAY
     Route: 048
     Dates: start: 20080620, end: 20101011
  9. ZYLORIC [Concomitant]
     Dosage: 1UNIT PER DAY
     Route: 065
  10. TRITTICO [Concomitant]
     Dosage: 1UNIT PER DAY
     Route: 065

REACTIONS (3)
  - TORSADE DE POINTES [None]
  - HYPOKALAEMIA [None]
  - VENTRICULAR TACHYCARDIA [None]
